FAERS Safety Report 6164428-4 (Version None)
Quarter: 2009Q2

REPORT INFORMATION
  Report Type: 
  Country: None (occurrence: None)
  Receive Date: 20090422
  Receipt Date: 20090317
  Transmission Date: 20091009
  Serious: Yes (Death)
  Sender: FDA-Public Use
  Company Number: DE-GENENTECH-279978

PATIENT

DRUGS (5)
  1. RITUXIMAB [Suspect]
     Indication: B-CELL LYMPHOMA
     Dosage: 375 MG/M2, Q3W
     Route: 065
  2. CYCLOPHOSPHAMIDE [Suspect]
     Indication: B-CELL LYMPHOMA
     Dosage: 750 MG/M2, Q3W
     Route: 042
  3. DOXORUBICIN HCL [Suspect]
     Indication: B-CELL LYMPHOMA
     Dosage: 50 MG/M2, Q3W
     Route: 042
  4. VINCRISTINE [Suspect]
     Indication: B-CELL LYMPHOMA
     Dosage: 1.4 MG/M2, Q3W
     Route: 042
  5. PREDNISONE [Suspect]
     Indication: B-CELL LYMPHOMA
     Dosage: 100 MG/M2, Q3W
     Route: 048

REACTIONS (3)
  - ALOPECIA [None]
  - BONE MARROW FAILURE [None]
  - INFECTION [None]
